FAERS Safety Report 14953176 (Version 1)
Quarter: 2018Q2

REPORT INFORMATION
  Report Type: Spontaneous
  Country: PT (occurrence: PT)
  Receive Date: 20180530
  Receipt Date: 20180530
  Transmission Date: 20180711
  Serious: Yes (Hospitalization, Other)
  Sender: FDA-Public Use
  Company Number: PT-IMPAX LABORATORIES, INC-2018-IPXL-01438

PATIENT
  Age: 36 Year
  Sex: Male

DRUGS (5)
  1. CARBIDOPA-LEVODOPA ER [Suspect]
     Active Substance: CARBIDOPA\LEVODOPA
     Dosage: 100/25 MG, FIVE TIMES A DAY
     Route: 048
  2. ROPINIROLE. [Suspect]
     Active Substance: ROPINIROLE
     Indication: PARKINSON^S DISEASE
     Dosage: 6 MG, DAILY
     Route: 065
  3. AMANTADINE. [Suspect]
     Active Substance: AMANTADINE HYDROCHLORIDE
     Indication: PARKINSON^S DISEASE
     Dosage: 100 MG, DAILY (TOTAL LED OF 720 MG)
     Route: 065
  4. ROPINIROLE. [Suspect]
     Active Substance: ROPINIROLE
     Dosage: 10 MG, DAILY
     Route: 065
  5. CARBIDOPA-LEVODOPA ER [Suspect]
     Active Substance: CARBIDOPA\LEVODOPA
     Indication: PARKINSON^S DISEASE
     Dosage: 100/25 MG, THREE TIMES/ DAY
     Route: 048

REACTIONS (12)
  - Hypocalcaemia [Recovered/Resolved]
  - Akathisia [Recovering/Resolving]
  - Hallucination, visual [Recovering/Resolving]
  - Aggression [Recovering/Resolving]
  - Rhabdomyolysis [Unknown]
  - Muscle spasms [Recovered/Resolved]
  - Therapeutic response shortened [Recovering/Resolving]
  - Parkinson^s disease [Unknown]
  - Dyskinesia [Recovered/Resolved]
  - On and off phenomenon [Unknown]
  - Anxiety [Recovered/Resolved]
  - Dystonia [Recovered/Resolved]
